FAERS Safety Report 24080745 (Version 1)
Quarter: 2024Q3

REPORT INFORMATION
  Report Type: Spontaneous
  Country: US (occurrence: US)
  Receive Date: 20240711
  Receipt Date: 20240711
  Transmission Date: 20241016
  Serious: Yes (Hospitalization)
  Sender: DR REDDYS
  Company Number: US-DRL-USA-LIT/USA/24/0010095

PATIENT
  Age: 12 Year
  Sex: Male
  Weight: 38 kg

DRUGS (4)
  1. TREPROSTINIL [Suspect]
     Active Substance: TREPROSTINIL
     Indication: Bronchopulmonary dysplasia
     Dosage: 40 NG/KG/MIN
     Route: 058
  2. TREPROSTINIL [Suspect]
     Active Substance: TREPROSTINIL
     Dosage: 36NG/KG/MIN
     Route: 058
  3. TADALAFIL [Suspect]
     Active Substance: TADALAFIL
     Indication: Bronchopulmonary dysplasia
  4. SELEXIPAG [Suspect]
     Active Substance: SELEXIPAG
     Indication: Bronchopulmonary dysplasia
     Dosage: 1600 MCG/MIN

REACTIONS (3)
  - Headache [Unknown]
  - Pulmonary arterial pressure increased [Unknown]
  - Product use in unapproved indication [Unknown]
